FAERS Safety Report 9915588 (Version 3)
Quarter: 2014Q2

REPORT INFORMATION
  Report Type: Report from Study
  Country: US (occurrence: US)
  Receive Date: 20140221
  Receipt Date: 20140527
  Transmission Date: 20141212
  Serious: Yes (Other)
  Sender: FDA-Public Use
  Company Number: US-ROCHE-1316983

PATIENT
  Age: 51 Year
  Sex: Female

DRUGS (14)
  1. LUCENTIS [Suspect]
     Indication: RETINAL VEIN OCCLUSION
     Dosage: RIGHT EYE (OD)
     Route: 050
     Dates: start: 20121220
  2. LUCENTIS [Suspect]
     Indication: CYSTOID MACULAR OEDEMA
     Dosage: RIGHT EYE (OD)
     Route: 050
     Dates: start: 20131121
  3. AVASTIN [Suspect]
     Indication: CYSTOID MACULAR OEDEMA
     Route: 050
     Dates: start: 20120816, end: 20121220
  4. AVASTIN [Suspect]
     Indication: RETINAL VEIN OCCLUSION
     Route: 050
     Dates: start: 20121220
  5. HYDROCORTISONE [Concomitant]
  6. ASPIRIN [Concomitant]
     Route: 065
  7. CLOBETASOL PROPIONATE [Concomitant]
     Dosage: TOPICAL OINTMENT
     Route: 061
  8. NYSTATIN/TRIAMCINOLONE [Concomitant]
     Dosage: DOSE:100,000 U/GM
     Route: 061
  9. HYDROXYZINE [Concomitant]
     Route: 065
  10. AQUAPHOR (UNITED STATES) [Concomitant]
     Route: 061
  11. ATORVASTATIN CALCIUM [Concomitant]
     Route: 048
  12. ZYRTEC-D [Concomitant]
  13. BACTRIM DS [Concomitant]
     Route: 065
  14. DESONIDE [Concomitant]

REACTIONS (10)
  - Ocular hyperaemia [Unknown]
  - Eye pruritus [Unknown]
  - Vitreous floaters [Unknown]
  - Eye pain [Unknown]
  - Lung infection [Unknown]
  - Visual acuity reduced [Unknown]
  - Photopsia [Unknown]
  - Lacrimation increased [Unknown]
  - Retinal disorder [Unknown]
  - Retinal haemorrhage [Unknown]
